FAERS Safety Report 4824197-4 (Version None)
Quarter: 2005Q4

REPORT INFORMATION
  Report Type: 
  Country: None (occurrence: None)
  Receive Date: 20051108
  Receipt Date: 20051025
  Transmission Date: 20060501
  Serious: Yes (Hospitalization, Other)
  Sender: FDA-Public Use
  Company Number: USA0509107476

PATIENT
  Age: 80 Year
  Sex: Female
  Weight: 63 kg

DRUGS (10)
  1. FORTEO [Suspect]
     Indication: OSTEOPOROSIS
     Dosage: 20 UG DAY
     Dates: start: 20050101
  2. PREMARIN [Concomitant]
  3. CELEBREX [Concomitant]
  4. DIOVAN [Concomitant]
  5. CARDIZEM /00489701/(DILTIAZEM) [Concomitant]
  6. COUMADIN [Concomitant]
  7. SYNTHROID [Concomitant]
  8. PREVACID [Concomitant]
  9. PRAVACHOL [Concomitant]
  10. FOSAMAX [Concomitant]

REACTIONS (3)
  - BLOOD TEST ABNORMAL [None]
  - BREAST CANCER FEMALE [None]
  - PHARMACEUTICAL PRODUCT COMPLAINT [None]
